FAERS Safety Report 6177673-9 (Version None)
Quarter: 2009Q2

REPORT INFORMATION
  Report Type: 
  Country: None (occurrence: None)
  Receive Date: 20090501
  Receipt Date: 20090501
  Transmission Date: 20091009
  Serious: Yes (Hospitalization)
  Sender: FDA-Public Use
  Company Number: None

PATIENT
  Age: 22 Year
  Sex: Male
  Weight: 62 kg

DRUGS (3)
  1. TYLENOL PM (APAP 500 MG AND DIPHENYDRAMINE 25 MG) [Suspect]
     Indication: SUICIDE ATTEMPT
     Dosage: 10 G APAP X 1 PO 5 G APAP X 1 PO
     Route: 048
     Dates: start: 20090131
  2. TYLENOL PM (APAP 500 MG AND DIPHENYDRAMINE 25 MG) [Suspect]
     Indication: SUICIDE ATTEMPT
     Dosage: 10 G APAP X 1 PO 5 G APAP X 1 PO
     Route: 048
     Dates: start: 20090201
  3. CELEXA [Concomitant]

REACTIONS (3)
  - ALANINE AMINOTRANSFERASE INCREASED [None]
  - ASPARTATE AMINOTRANSFERASE INCREASED [None]
  - INCORRECT DOSE ADMINISTERED [None]
